FAERS Safety Report 14172247 (Version 2)
Quarter: 2018Q1

REPORT INFORMATION
  Report Type: Spontaneous
  Country: LT (occurrence: LT)
  Receive Date: 20171109
  Receipt Date: 20180103
  Transmission Date: 20180508
  Serious: Yes (Other)
  Sender: FDA-Public Use
  Company Number: LT-SUN PHARMACEUTICAL INDUSTRIES LTD-2017R1-154149

PATIENT
  Age: 74 Year
  Sex: Female

DRUGS (21)
  1. METHYLPREDNISOLONE. [Interacting]
     Active Substance: METHYLPREDNISOLONE
     Dosage: 500 MG, SINGLE
     Route: 042
     Dates: start: 20150319
  2. METHYLPREDNISOLONE. [Interacting]
     Active Substance: METHYLPREDNISOLONE
     Dosage: 500 MG, SINGLE
     Route: 042
     Dates: start: 20150416
  3. METHIMAZOLE. [Interacting]
     Active Substance: METHIMAZOLE
     Dosage: 5 MG, BID
     Route: 048
     Dates: start: 20150305
  4. METHIMAZOLE. [Interacting]
     Active Substance: METHIMAZOLE
     Dosage: UNK
     Route: 048
     Dates: start: 20150319
  5. METHYLPREDNISOLONE. [Interacting]
     Active Substance: METHYLPREDNISOLONE
     Dosage: 500 MG, SINGLE
     Route: 042
     Dates: start: 20150423
  6. METHIMAZOLE. [Interacting]
     Active Substance: METHIMAZOLE
     Dosage: UNK
     Route: 048
     Dates: start: 20150402
  7. METHYLPREDNISOLONE. [Interacting]
     Active Substance: METHYLPREDNISOLONE
     Dosage: 500 MG, SINGLE
     Route: 042
     Dates: start: 20150305
  8. METHIMAZOLE. [Interacting]
     Active Substance: METHIMAZOLE
     Dosage: UNK
     Route: 048
     Dates: start: 20150409
  9. METHYLPREDNISOLONE. [Interacting]
     Active Substance: METHYLPREDNISOLONE
     Indication: ENDOCRINE OPHTHALMOPATHY
     Dosage: 500 MG, SINGLE
     Route: 042
     Dates: start: 20150227
  10. METHYLPREDNISOLONE. [Interacting]
     Active Substance: METHYLPREDNISOLONE
     Dosage: 500 MG, SINGLE
     Route: 042
     Dates: start: 20150326
  11. METHYLPREDNISOLONE. [Interacting]
     Active Substance: METHYLPREDNISOLONE
     Dosage: 500 MG, SINGLE
     Route: 042
     Dates: start: 20150402
  12. METHYLPREDNISOLONE. [Interacting]
     Active Substance: METHYLPREDNISOLONE
     Dosage: 500 MG, SINGLE
     Route: 042
     Dates: start: 20150409
  13. METHYLPREDNISOLONE. [Interacting]
     Active Substance: METHYLPREDNISOLONE
     Dosage: 250 MG, 1/WEEK
     Route: 042
  14. METHYLPREDNISOLONE. [Interacting]
     Active Substance: METHYLPREDNISOLONE
     Dosage: 500 MG, SINGLE
     Route: 042
     Dates: start: 20150302
  15. METHIMAZOLE. [Interacting]
     Active Substance: METHIMAZOLE
     Dosage: 5 MG, BID
     Route: 048
     Dates: start: 20150226
  16. METHIMAZOLE. [Interacting]
     Active Substance: METHIMAZOLE
     Dosage: UNK
     Route: 048
     Dates: start: 20150312
  17. METHIMAZOLE. [Interacting]
     Active Substance: METHIMAZOLE
     Dosage: UNK
     Route: 048
     Dates: start: 20150416
  18. METHYLPREDNISOLONE. [Interacting]
     Active Substance: METHYLPREDNISOLONE
     Dosage: 500 MG, SINGLE
     Route: 042
     Dates: start: 20150312
  19. METHIMAZOLE. [Suspect]
     Active Substance: METHIMAZOLE
     Indication: HYPERTHYROIDISM
     Dosage: 10 MG, DAILY
     Route: 048
  20. METHIMAZOLE. [Interacting]
     Active Substance: METHIMAZOLE
     Dosage: 5 MG, QD
     Route: 048
     Dates: start: 20150326
  21. METHIMAZOLE. [Interacting]
     Active Substance: METHIMAZOLE
     Dosage: UNK
     Route: 048
     Dates: start: 20150423

REACTIONS (4)
  - Diabetes mellitus [Recovering/Resolving]
  - Drug interaction [Recovering/Resolving]
  - Hypothyroidism [Recovering/Resolving]
  - Drug-induced liver injury [Recovering/Resolving]

NARRATIVE: CASE EVENT DATE: 2015
